FAERS Safety Report 17429213 (Version 2)
Quarter: 2024Q2

REPORT INFORMATION
  Report Type: Report from Study
  Country: US (occurrence: US)
  Receive Date: 20200218
  Receipt Date: 20240520
  Transmission Date: 20240716
  Serious: No
  Sender: FDA-Public Use
  Company Number: US-KYOWAKIRIN-2020BKK002101

PATIENT

DRUGS (3)
  1. CRYSVITA [Suspect]
     Active Substance: BUROSUMAB-TWZA
     Indication: Hereditary hypophosphataemic rickets
     Dosage: 10 MG, 1X/2 WEEKS
     Route: 058
  2. CRYSVITA [Suspect]
     Active Substance: BUROSUMAB-TWZA
     Indication: Hereditary hypophosphataemic rickets
     Dosage: 0.8 ML (16 MG) UNDER THE SKIN, EVERY 14 DAYS
     Route: 065
  3. FAMOTIDINE [Concomitant]
     Active Substance: FAMOTIDINE
     Indication: Product used for unknown indication
     Dosage: 10 MG
     Route: 065

REACTIONS (2)
  - Laboratory test abnormal [Unknown]
  - Fear of injection [Unknown]
